FAERS Safety Report 4330710-6 (Version None)
Quarter: 2004Q1

REPORT INFORMATION
  Report Type: 
  Country: None (occurrence: None)
  Receive Date: 20040328
  Receipt Date: 20040312
  Transmission Date: 20041129
  Serious: Yes (Other)
  Sender: FDA-Public Use
  Company Number: SUSI-2004-00156

PATIENT

DRUGS (1)
  1. AGRYLIN [Suspect]

REACTIONS (1)
  - CARDIAC ARREST [None]
